FAERS Safety Report 8172842-0 (Version None)
Quarter: 2012Q1

REPORT INFORMATION
  Report Type: 
  Country: None (occurrence: None)
  Receive Date: 20120223
  Receipt Date: 20120207
  Transmission Date: 20120608
  Serious: Yes (Hospitalization, Congenital Anomaly, Other)
  Sender: FDA-Public Use
  Company Number: 1000028438

PATIENT
  Sex: Male
  Weight: 3.07 kg

DRUGS (1)
  1. ESCITALOPRAM OXALATE [Suspect]
     Dosage: 40 MG (40 MG,L IN 1 D),TRANSPLACENTAL
     Route: 064

REACTIONS (7)
  - NEONATAL RESPIRATORY DISTRESS SYNDROME [None]
  - PATENT DUCTUS ARTERIOSUS [None]
  - ATRIAL SEPTAL DEFECT [None]
  - MATERNAL DRUGS AFFECTING FOETUS [None]
  - INFANTILE APNOEIC ATTACK [None]
  - PYELOCALIECTASIS [None]
  - AGITATION NEONATAL [None]
